FAERS Safety Report 9269854 (Version 1)
Quarter: 2013Q2

REPORT INFORMATION
  Report Type: Spontaneous
  Country: US (occurrence: US)
  Receive Date: 20130503
  Receipt Date: 20130503
  Transmission Date: 20140414
  Serious: No
  Sender: FDA-Public Use
  Company Number: US-009507513-1305USA000677

PATIENT
  Age: 43 Year
  Sex: Female

DRUGS (2)
  1. NASONEX [Suspect]
     Indication: SINUSITIS
     Dosage: 50 MICROGRAM, UNK
     Route: 045
     Dates: start: 20130405
  2. TYLENOL [Concomitant]
     Dosage: UNK

REACTIONS (1)
  - Epistaxis [Recovered/Resolved]
